FAERS Safety Report 17849376 (Version 1)
Quarter: 2020Q2

REPORT INFORMATION
  Report Type: Spontaneous
  Country: NL (occurrence: NL)
  Receive Date: 20200602
  Receipt Date: 20200602
  Transmission Date: 20200714
  Serious: Yes (Other)
  Sender: FDA-Public Use
  Company Number: NL-SA-2020SA138175

PATIENT

DRUGS (2)
  1. CLOMID [Suspect]
     Active Substance: CLOMIPHENE CITRATE
     Indication: HYPOGONADISM
     Dosage: 25MG EVERY OTHER DAY
     Dates: start: 20171024
  2. CIALIS [Concomitant]
     Active Substance: TADALAFIL
     Dosage: FILMCOATED TABLET, 5 MG (MILLIGRAM)

REACTIONS (2)
  - Pulmonary embolism [Recovered/Resolved]
  - Off label use [Unknown]

NARRATIVE: CASE EVENT DATE: 20191001
